FAERS Safety Report 23742986 (Version 1)
Quarter: 2024Q2

REPORT INFORMATION
  Report Type: Spontaneous
  Country: US (occurrence: None)
  Receive Date: 20240412
  Receipt Date: 20240412
  Transmission Date: 20240716
  Serious: No
  Sender: FDA-Public Use
  Company Number: None

PATIENT
  Age: 67 Year
  Sex: Female
  Weight: 85.5 kg

DRUGS (10)
  1. SEMAGLUTIDE [Suspect]
     Active Substance: SEMAGLUTIDE
     Indication: Weight decreased
     Dosage: ONCE A WEEK  SUBCUTANEOUS
     Route: 058
     Dates: start: 20231231, end: 20240128
  2. HYDROCHLOROTHIAZIDE\LISINOPRIL [Concomitant]
     Active Substance: HYDROCHLOROTHIAZIDE\LISINOPRIL
  3. PRAVASTATIN [Concomitant]
     Active Substance: PRAVASTATIN
  4. LORATADINE [Concomitant]
     Active Substance: LORATADINE
  5. TIMOLOL MALEATE [Concomitant]
     Active Substance: TIMOLOL MALEATE
  6. FLUTICASONE [Concomitant]
     Active Substance: FLUTICASONE
  7. Centrum MVI gummies [Concomitant]
  8. VITAMIN D3 [Concomitant]
     Active Substance: CHOLECALCIFEROL
  9. VITAMIN B12 [Concomitant]
     Active Substance: CYANOCOBALAMIN
  10. IBUPROFEN [Concomitant]
     Active Substance: IBUPROFEN

REACTIONS (2)
  - Parosmia [None]
  - Taste disorder [None]

NARRATIVE: CASE EVENT DATE: 20240116
